FAERS Safety Report 11434044 (Version 1)
Quarter: 2015Q3

REPORT INFORMATION
  Report Type: Spontaneous
  Country: US (occurrence: None)
  Receive Date: 20150828
  Receipt Date: 20150828
  Transmission Date: 20151125
  Serious: Yes (Death)
  Sender: FDA-Public Use
  Company Number: None

PATIENT
  Age: 75 Year
  Sex: Male
  Weight: 79.38 kg

DRUGS (3)
  1. BABY ASPRIN [Concomitant]
     Active Substance: ASPIRIN
  2. LOSARTAN TAB 25 MG FOR COZAAR [Suspect]
     Active Substance: LOSARTAN
     Indication: HYPERTENSION
     Route: 048
     Dates: start: 20141016, end: 20141016
  3. NORVASC [Concomitant]
     Active Substance: AMLODIPINE BESYLATE

REACTIONS (4)
  - Cerebrovascular accident [None]
  - Cardiac failure congestive [None]
  - Myocardial infarction [None]
  - Dyspnoea [None]

NARRATIVE: CASE EVENT DATE: 20141016
